FAERS Safety Report 10651628 (Version 2)
Quarter: 2015Q1

REPORT INFORMATION
  Report Type: Report from Study
  Country: US (occurrence: US)
  Receive Date: 20141215
  Receipt Date: 20150309
  Transmission Date: 20150720
  Serious: No
  Sender: FDA-Public Use
  Company Number: US-ABBVIE-14P-163-1310177-00

PATIENT
  Age: 52 Year
  Sex: Female

DRUGS (3)
  1. LUPRON DEPOT [Suspect]
     Active Substance: LEUPROLIDE ACETATE
     Indication: UTERINE LEIOMYOMA
     Route: 050
     Dates: start: 20141113
  2. LUPRON DEPOT [Suspect]
     Active Substance: LEUPROLIDE ACETATE
     Indication: ENDOMETRIOSIS
  3. PLEXUS [Concomitant]
     Indication: NUTRITIONAL SUPPLEMENTATION
     Dosage: SUPPLEMENTAL DRINK DAILY

REACTIONS (8)
  - Gait disturbance [Recovering/Resolving]
  - Vaginal haemorrhage [Not Recovered/Not Resolved]
  - Musculoskeletal pain [Recovering/Resolving]
  - Pelvic pain [Recovering/Resolving]
  - Dizziness [Recovering/Resolving]
  - Hot flush [Not Recovered/Not Resolved]
  - Arthralgia [Recovering/Resolving]
  - Back pain [Not Recovered/Not Resolved]

NARRATIVE: CASE EVENT DATE: 20141117
